FAERS Safety Report 9193991 (Version 1)
Quarter: 2013Q1

REPORT INFORMATION
  Report Type: Spontaneous
  Country: US (occurrence: US)
  Receive Date: 20130327
  Receipt Date: 20130327
  Transmission Date: 20140127
  Serious: Yes (Other)
  Sender: FDA-Public Use
  Company Number: US-BAYER-2013-035404

PATIENT
  Sex: Female

DRUGS (1)
  1. PHILLIPS^ MILK OF MAGNESIA LIQUID ORIGINAL [Suspect]
     Indication: CONSTIPATION
     Dosage: 2 TBSP, ONCE
     Route: 048
     Dates: start: 20130316, end: 20130316

REACTIONS (1)
  - Blood pressure increased [Recovered/Resolved]
